FAERS Safety Report 16542516 (Version 1)
Quarter: 2019Q3

REPORT INFORMATION
  Report Type: Spontaneous
  Country: US (occurrence: US)
  Receive Date: 20190709
  Receipt Date: 20190709
  Transmission Date: 20191004
  Serious: Yes (Other)
  Sender: FDA-Public Use
  Company Number: US-AUROBINDO-AUR-APL-2019-037740

PATIENT

DRUGS (10)
  1. SERTRALINE [Concomitant]
     Active Substance: SERTRALINE HYDROCHLORIDE
     Indication: HYPONATRAEMIA
     Dosage: 15 MILLIGRAM, ONCE A DAY
     Route: 065
  2. FUROSEMIDE. [Suspect]
     Active Substance: FUROSEMIDE
     Indication: EJECTION FRACTION DECREASED
  3. CARVEDILOL. [Suspect]
     Active Substance: CARVEDILOL
     Indication: CARDIAC FAILURE
     Dosage: 6.25 MILLIGRAM, TWO TIMES A DAY
     Route: 065
  4. DIGOXIN. [Concomitant]
     Active Substance: DIGOXIN
     Indication: CARDIAC FAILURE
     Dosage: 0.125 MILLIGRAM
     Route: 048
  5. ENALAPRIL [Suspect]
     Active Substance: ENALAPRIL
     Indication: EJECTION FRACTION DECREASED
  6. CARVEDILOL. [Suspect]
     Active Substance: CARVEDILOL
     Indication: EJECTION FRACTION DECREASED
  7. LEVODOPA/CARBIDOPA [Concomitant]
     Active Substance: CARBIDOPA\LEVODOPA
     Indication: PARKINSON^S DISEASE
     Dosage: 25/100 MILLIGRAM FOUR TIMES A DAY
     Route: 065
  8. ENALAPRIL [Suspect]
     Active Substance: ENALAPRIL
     Indication: CARDIAC FAILURE
     Dosage: 2.5 MILLIGRAM, TWO TIMES A DAY
     Route: 065
  9. FUROSEMIDE. [Suspect]
     Active Substance: FUROSEMIDE
     Indication: CARDIAC FAILURE
     Dosage: 20 MILLIGRAM, AS NECESSARY
     Route: 065
  10. WARFARIN [Concomitant]
     Active Substance: WARFARIN
     Indication: CARDIAC FAILURE
     Dosage: 2.5 MILLIGRAM, ONCE A DAY
     Route: 065

REACTIONS (7)
  - Orthostatic hypotension [Recovering/Resolving]
  - Presyncope [Recovering/Resolving]
  - Weight decreased [Recovering/Resolving]
  - Dizziness [Recovering/Resolving]
  - Fatigue [Recovering/Resolving]
  - Asthenia [Recovering/Resolving]
  - Dysstasia [Recovering/Resolving]
